FAERS Safety Report 21743020 (Version 1)
Quarter: 2022Q4

REPORT INFORMATION
  Report Type: Report from Study
  Country: US (occurrence: US)
  Receive Date: 20221217
  Receipt Date: 20221217
  Transmission Date: 20230112
  Serious: No
  Sender: FDA-Public Use
  Company Number: US-ABBVIE-4195706

PATIENT

DRUGS (2)
  1. RINVOQ [Suspect]
     Active Substance: UPADACITINIB
     Indication: Product used for unknown indication
     Route: 048
  2. Covid-19 vaccine (vero cell), inactivated (COVID-19 vaccine inact (... [Concomitant]
     Indication: COVID-19 immunisation
     Route: 030

REACTIONS (1)
  - Cardiac disorder [Unknown]
